FAERS Safety Report 19659580 (Version 1)
Quarter: 2021Q3

REPORT INFORMATION
  Report Type: Spontaneous
  Country: CN (occurrence: CN)
  Receive Date: 20210804
  Receipt Date: 20210804
  Transmission Date: 20211014
  Serious: Yes (Hospitalization, Disabling, Other)
  Sender: FDA-Public Use
  Company Number: CN-BAXTER-2021BAX023203

PATIENT
  Age: 66 Year
  Sex: Female
  Weight: 62.6 kg

DRUGS (4)
  1. 0.9% SODIUM CHLORIDE INJECTION [Suspect]
     Active Substance: SODIUM CHLORIDE
     Indication: MEDICATION DILUTION
     Dosage: CYCLOPHOSPHAMIDE FOR INJECTION 800 MG + SODIUM CHLORIDE INJECTION 500ML
     Route: 041
     Dates: start: 20201012, end: 20201012
  2. PHARMORUBICIN [Suspect]
     Active Substance: EPIRUBICIN
     Indication: BREAST CANCER
     Dosage: PHARMORUBICIN FOR INJECTION 150 MG + SODIUM CHLORIDE INJECTION 500ML.
     Route: 041
     Dates: start: 20201012, end: 20201012
  3. ENDOXAN [Suspect]
     Active Substance: CYCLOPHOSPHAMIDE
     Indication: BREAST CANCER
     Dosage: CYCLOPHOSPHAMIDE FOR INJECTION 800 MG + SODIUM CHLORIDE INJECTION 500ML
     Route: 041
     Dates: start: 20201012, end: 20201012
  4. 0.9% SODIUM CHLORIDE INJECTION [Suspect]
     Active Substance: SODIUM CHLORIDE
     Dosage: PHARMORUBICIN FOR INJECTION 150 MG + SODIUM CHLORIDE INJECTION 500ML
     Route: 041
     Dates: start: 20201012, end: 20201012

REACTIONS (9)
  - Erythema [Unknown]
  - Dizziness [Unknown]
  - Decreased appetite [Unknown]
  - White blood cell count decreased [Not Recovered/Not Resolved]
  - Nausea [Unknown]
  - Vomiting [Unknown]
  - Muscular weakness [Unknown]
  - Visual impairment [Unknown]
  - Neutrophil count decreased [Not Recovered/Not Resolved]

NARRATIVE: CASE EVENT DATE: 20201012
